FAERS Safety Report 6039720-4 (Version None)
Quarter: 2009Q1

REPORT INFORMATION
  Report Type: 
  Country: None (occurrence: None)
  Receive Date: 20090116
  Receipt Date: 20090107
  Transmission Date: 20090719
  Serious: Yes (Other)
  Sender: FDA-Public Use
  Company Number: PHEH2009US00588

PATIENT
  Sex: Female

DRUGS (5)
  1. ZOMETA [Suspect]
     Indication: METASTASES TO BONE
     Dosage: 4 MG IV MONTHLY
     Route: 042
     Dates: start: 20011101, end: 20040601
  2. ZOMETA [Suspect]
     Indication: BREAST CANCER
  3. ZOMETA [Suspect]
     Indication: BREAST CANCER METASTATIC
  4. ZOLADEX [Concomitant]
     Indication: CHEMOTHERAPY
     Dosage: UNK
  5. EPOGEN [Concomitant]

REACTIONS (4)
  - BONE DISORDER [None]
  - ERYTHEMA [None]
  - INFLAMMATION [None]
  - JAW FRACTURE [None]
